FAERS Safety Report 18058276 (Version 1)
Quarter: 2020Q3

REPORT INFORMATION
  Report Type: Spontaneous
  Country: IT (occurrence: IT)
  Receive Date: 20200723
  Receipt Date: 20200723
  Transmission Date: 20201103
  Serious: Yes (Other)
  Sender: FDA-Public Use
  Company Number: IT-ROCHE-2647059

PATIENT
  Age: 46 Year
  Sex: Female
  Weight: 78 kg

DRUGS (3)
  1. HERCEPTIN [Suspect]
     Active Substance: TRASTUZUMAB
     Indication: BREAST CANCER
     Dosage: DATE OF MOST RECENT DOSE OF TRASTUZUMAB :10/APR/2020.
     Route: 042
     Dates: start: 20180401
  2. PERJETA [Suspect]
     Active Substance: PERTUZUMAB
     Indication: BREAST CANCER
     Dosage: DATE OF MOST RECENT DOSE OF PERTUZUMAB: 10/APR/2020
     Route: 042
     Dates: start: 20180401
  3. XGEVA [Suspect]
     Active Substance: DENOSUMAB
     Indication: PROPHYLAXIS
     Route: 030
     Dates: start: 20180401, end: 20200410

REACTIONS (1)
  - Dehiscence [Recovering/Resolving]

NARRATIVE: CASE EVENT DATE: 20200601
